FAERS Safety Report 8392060-0 (Version None)
Quarter: 2012Q2

REPORT INFORMATION
  Report Type: 
  Country: None (occurrence: None)
  Receive Date: 20120525
  Receipt Date: 20120525
  Transmission Date: 20120825
  Serious: Yes (Hospitalization)
  Sender: FDA-Public Use
  Company Number: None

PATIENT
  Sex: Female
  Weight: 63.64 kg

DRUGS (2)
  1. PACLITAXEL [Suspect]
     Dosage: 131 MG
  2. CARBOPLATIN [Suspect]
     Dosage: 321 MG

REACTIONS (11)
  - CHILLS [None]
  - MENTAL STATUS CHANGES [None]
  - HAEMOGLOBIN DECREASED [None]
  - BLOOD CULTURE POSITIVE [None]
  - PLATELET COUNT DECREASED [None]
  - BLOOD GLUCOSE DECREASED [None]
  - HAEMATOCRIT DECREASED [None]
  - STAPHYLOCOCCAL INFECTION [None]
  - WHITE BLOOD CELL COUNT DECREASED [None]
  - MICROANGIOPATHY [None]
  - BRAIN SCAN ABNORMAL [None]
